FAERS Safety Report 10185266 (Version 1)
Quarter: 2014Q2

REPORT INFORMATION
  Report Type: Spontaneous
  Country: US (occurrence: US)
  Receive Date: 20140521
  Receipt Date: 20140521
  Transmission Date: 20141212
  Serious: Yes (Other)
  Sender: FDA-Public Use
  Company Number: US-JNJFOC-20140511097

PATIENT
  Age: 73 Year
  Sex: Female

DRUGS (2)
  1. INFLIXIMAB, RECOMBINANT [Suspect]
     Indication: RHEUMATOID ARTHRITIS
     Dosage: FOURTH INFUSION: WEEK 12, FIFTH INFUSION: WEEK 18, SIXTH INFUSION: CUMULATIVE EXPOSURE OF 24 WEEKS
     Route: 042
  2. INFLIXIMAB, RECOMBINANT [Suspect]
     Indication: RHEUMATOID ARTHRITIS
     Dosage: DOSING REQUENCY: 0, 2, 6 WEEKS
     Route: 042

REACTIONS (3)
  - Dermatitis [Recovered/Resolved]
  - Small fibre neuropathy [Recovering/Resolving]
  - Lupus-like syndrome [Unknown]
